FAERS Safety Report 7720491-8 (Version None)
Quarter: 2011Q3

REPORT INFORMATION
  Report Type: 
  Country: None (occurrence: None)
  Receive Date: 20110830
  Receipt Date: 20110830
  Transmission Date: 20111222
  Serious: Yes (Other)
  Sender: FDA-Public Use
  Company Number: None

PATIENT
  Age: 3 Month
  Sex: Male
  Weight: 3.5 kg

DRUGS (2)
  1. RIFAMPIN [Suspect]
     Dosage: 310 MG X 1 DOSE INTRAVENOUS
     Route: 042
     Dates: start: 20110721
  2. VANCOMYCIN [Concomitant]

REACTIONS (5)
  - AGITATION [None]
  - VOMITING [None]
  - ERYTHEMA [None]
  - OEDEMA PERIPHERAL [None]
  - AURICULAR SWELLING [None]
